FAERS Safety Report 4844889-0 (Version None)
Quarter: 2005Q4

REPORT INFORMATION
  Report Type: 
  Country: None (occurrence: None)
  Receive Date: 20051201
  Receipt Date: 20051201
  Transmission Date: 20060501
  Serious: Yes (Hospitalization)
  Sender: FDA-Public Use
  Company Number: None

PATIENT
  Sex: Female
  Weight: 48 kg

DRUGS (10)
  1. QUETIAPINE FUMARATE [Suspect]
     Indication: BIPOLAR DISORDER
     Dosage: 75 MG AT BEDTIME PO
     Route: 048
  2. NORVASC [Concomitant]
  3. KLONOPIN [Concomitant]
  4. PAXIL [Concomitant]
  5. HYDROCHLOROTHIAZIDE [Concomitant]
  6. ISONIAZID [Concomitant]
  7. PYRIDOXINE HCL [Concomitant]
  8. PROTONIX [Concomitant]
  9. SEPTRA DS [Concomitant]
  10. MEGACE [Concomitant]

REACTIONS (4)
  - AMNESIA [None]
  - DISORIENTATION [None]
  - DRUG ABUSER [None]
  - HALLUCINATION [None]
